FAERS Safety Report 24267908 (Version 4)
Quarter: 2025Q4

REPORT INFORMATION
  Report Type: Report from Study
  Country: US (occurrence: US)
  Receive Date: 20240830
  Receipt Date: 20251125
  Transmission Date: 20260119
  Serious: Yes (Other)
  Sender: AIMMUNE
  Company Number: US-ZENPEP LLC-2024AIMT01294

PATIENT

DRUGS (28)
  1. ZENPEP [Suspect]
     Active Substance: PANCRELIPASE AMYLASE\PANCRELIPASE LIPASE\PANCRELIPASE PROTEASE
     Indication: Pancreatic failure
     Dosage: 40,000-126,000-168,000 UNIT CAPSULES, 3 WITH MEALS AND 2 WITH SNACKS
     Route: 048
     Dates: start: 202205
  2. ZENPEP [Suspect]
     Active Substance: PANCRELIPASE AMYLASE\PANCRELIPASE LIPASE\PANCRELIPASE PROTEASE
     Dosage: 40,000-126,000-168,000 UNIT CAPSULES, 3 WITH MEALS AND 2 WITH SNACKS, ONCE, LAST DOSE PRIOR TO EVENT
     Route: 048
  3. CETIRIZINE [Concomitant]
     Active Substance: CETIRIZINE HYDROCHLORIDE
     Indication: Product used for unknown indication
     Dosage: 10 MG TABLET, 1 TABLETS, 1X/DAY
     Dates: start: 20250827
  4. COENZYME Q10 [Concomitant]
     Active Substance: DIETARY SUPPLEMENT\UBIDECARENONE
     Indication: Product used for unknown indication
     Dosage: 10 MG CAPSULE
     Route: 048
  5. CYANOCOBALAMIN [Concomitant]
     Active Substance: CYANOCOBALAMIN
     Indication: Product used for unknown indication
     Dosage: 1,000 MCG/ML, 1 ML, ONCE, EVERY 14 DAYS
     Route: 051
     Dates: start: 20250902
  6. DONEPEZIL [Concomitant]
     Active Substance: DONEPEZIL
     Indication: Product used for unknown indication
     Dosage: 10 MG TABLET, ONE, EVERY DAY
     Route: 048
     Dates: start: 20250930
  7. DULOXETINE [Concomitant]
     Active Substance: DULOXETINE
     Indication: Product used for unknown indication
     Dosage: ONE 60 MG DELAYED RELEASE CAPSULE PER DAY
     Dates: start: 20250129
  8. ESOMEPRAZOLE MAGNESIUM [Concomitant]
     Active Substance: ESOMEPRAZOLE MAGNESIUM
     Indication: Product used for unknown indication
     Dosage: ONE 40 MG DELAYED RELEASE CAPSULE, TWICE DAILY AS DIRECTED
     Route: 048
     Dates: start: 20250717
  9. FENOFIBRATE [Concomitant]
     Active Substance: FENOFIBRATE
     Indication: Product used for unknown indication
     Dosage: ONE 160 MG TABLET, DAILY
     Route: 048
     Dates: start: 20250626
  10. FLUTICASONE PROPIONATE [Concomitant]
     Active Substance: FLUTICASONE PROPIONATE
     Indication: Product used for unknown indication
     Dosage: 50 MCG/ACTUATION
     Route: 045
     Dates: start: 20241002
  11. GVOKE [Concomitant]
     Active Substance: GLUCAGON
     Indication: Hypoglycaemia
     Dosage: 1 MG AS NEEDED
     Route: 058
     Dates: start: 20251006
  12. HUMALOG [Concomitant]
     Active Substance: INSULIN LISPRO
     Indication: Product used for unknown indication
     Dosage: WITH MEALS AND SNACKS, UP TO 85 UNITS DAILY
     Route: 058
     Dates: start: 20250312
  13. HUMALOG [Concomitant]
     Active Substance: INSULIN LISPRO
     Dosage: 2-3 UNITS WITH MEALS
  14. LANTUS [Concomitant]
     Active Substance: INSULIN GLARGINE
     Indication: Product used for unknown indication
     Dosage: UP TO 50 UNITS FOR 90 DAYS
     Route: 058
     Dates: start: 20250604
  15. LANTUS [Concomitant]
     Active Substance: INSULIN GLARGINE
     Dosage: 11-13 UNITS,  BASED  ON BLOOD GLUCOSE LEVELS
  16. MONTELUKAST [Concomitant]
     Active Substance: MONTELUKAST
     Indication: Product used for unknown indication
     Dosage: ONE 10 MG TABLET PER DAY, AS NEEDED
     Route: 048
     Dates: start: 20250305
  17. OXYCODONE [Concomitant]
     Active Substance: OXYCODONE
     Indication: Pain
     Dosage: ONE 5 MG TABLET, TWICE PER DAY, AS NEEDED
     Route: 048
     Dates: start: 20250918
  18. PILOCARPINE [Concomitant]
     Active Substance: PILOCARPINE
     Indication: Product used for unknown indication
     Dosage: ONE 5 MG TABLET, TWICE DAILY
     Route: 048
     Dates: start: 20250905
  19. PREGABALIN [Concomitant]
     Active Substance: PREGABALIN
     Indication: Neuralgia
     Dosage: ONE 100 MG CAPSULE, TWICE DAILY, AS DIRECTED
     Route: 048
     Dates: start: 20250926
  20. PREGABALIN [Concomitant]
     Active Substance: PREGABALIN
     Indication: Product used for unknown indication
     Dosage: ONE 50 MG CAPSULE DAILY, AT NOON
     Route: 048
     Dates: start: 20250827
  21. RAMIPRIL [Concomitant]
     Active Substance: RAMIPRIL
     Indication: Product used for unknown indication
     Dosage: ONE 10 MG CAPSULE DAILY, AS DIRECTED
     Route: 048
     Dates: start: 20250904
  22. SUCRALFATE [Concomitant]
     Active Substance: SUCRALFATE
     Indication: Product used for unknown indication
     Dosage: ONE 1 G TABLET WITH MEALS + BEDTIME (4 TIMES DAILY)
     Route: 048
     Dates: start: 20250318
  23. TERAZOSIN [Concomitant]
     Active Substance: TERAZOSIN HYDROCHLORIDE
     Indication: Product used for unknown indication
     Dosage: ONE 5 MG CAPSULE DAILY, AS DIRECTED
     Route: 048
     Dates: start: 20250205
  24. TESTOSTERONE [Concomitant]
     Active Substance: TESTOSTERONE
     Indication: Hypogonadism male
     Dosage: TWO 20.25 MG/1.25 GRAM PUMPS DAILY, AS DIRECTED FOR 90 DAYS
     Route: 062
     Dates: start: 20251006
  25. TIZANIDINE [Concomitant]
     Active Substance: TIZANIDINE
     Indication: Product used for unknown indication
     Dosage: ONE 4 MG TABLET AT BEDTIME, AS NEEDED
     Route: 048
     Dates: start: 20251006
  26. VITAMIN D3 [Concomitant]
     Active Substance: CHOLECALCIFEROL
     Indication: Product used for unknown indication
     Dosage: TWO 50 MCG (2,000 UNIT) CAPSULES, DAILY
     Route: 048
     Dates: start: 20190319
  27. XTAMPZA ER [Concomitant]
     Active Substance: OXYCODONE
     Indication: Pain
     Dosage: ONE 18 MG CAPSULE SPRINKLE, TWICE DAILY, AS NEEDED
     Route: 048
     Dates: start: 20250910
  28. ZOLPIDEM [Concomitant]
     Active Substance: ZOLPIDEM TARTRATE
     Indication: Product used for unknown indication
     Dosage: ONE TABLET, AT BEDTIME
     Route: 048
     Dates: start: 20250730

REACTIONS (13)
  - Pancreatectomy [Unknown]
  - Back pain [Unknown]
  - Insomnia [Unknown]
  - Memory impairment [Unknown]
  - Diabetic gastroparesis [Unknown]
  - Benign prostatic hyperplasia [Unknown]
  - Vitamin D deficiency [Unknown]
  - Hypoglycaemia [Unknown]
  - Product dose omission in error [Unknown]
  - COVID-19 [Unknown]
  - Weight decreased [Unknown]
  - Abdominal pain [Unknown]
  - Walking aid user [Unknown]

NARRATIVE: CASE EVENT DATE: 20250312
